FAERS Safety Report 4978351-1 (Version None)
Quarter: 2006Q1

REPORT INFORMATION
  Report Type: 
  Country: None (occurrence: None)
  Receive Date: 20060217
  Receipt Date: 20050428
  Transmission Date: 20060701
  Serious: Yes (Hospitalization)
  Sender: FDA-Public Use
  Company Number: MEST00305001394

PATIENT
  Age: 25 Year
  Sex: Female
  Weight: 63 kg

DRUGS (3)
  1. ROWASA [Suspect]
     Indication: CROHN'S DISEASE
     Dosage: 500 MILLIGRAM(S) ORAL DAILY DOSE: 3 GRAM(S)
     Route: 048
     Dates: start: 20040915, end: 20050330
  2. IMURAN [Suspect]
     Indication: ABSCESS INTESTINAL
     Dosage: 50 MILLIGRAM(S) DAILY ORAL DAILY DOSE: 50 MILLIGRAM(S)
     Route: 048
     Dates: start: 20050315, end: 20050330
  3. ENTOCORT (BUDESONIDE) [Concomitant]

REACTIONS (1)
  - PANCREATITIS ACUTE [None]
